FAERS Safety Report 9790778 (Version 3)
Quarter: 2014Q2

REPORT INFORMATION
  Report Type: Report from Study
  Country: JP (occurrence: JP)
  Receive Date: 20131231
  Receipt Date: 20140625
  Transmission Date: 20141212
  Serious: Yes (Other)
  Sender: FDA-Public Use
  Company Number: JP-AMGEN-JPNCT2013090956

PATIENT
  Age: 74 Year
  Sex: Female
  Weight: 64 kg

DRUGS (14)
  1. DARBEPOETIN ALFA [Suspect]
     Indication: NEPHROGENIC ANAEMIA
     Dosage: 60 MUG, Q4WK
     Route: 040
     Dates: start: 20101117
  2. RIZE                               /00624801/ [Concomitant]
     Dosage: UNK
     Route: 048
  3. ATELEC [Concomitant]
     Dosage: UNK
     Route: 048
  4. KAYEXALATE [Concomitant]
     Dosage: UNK
     Route: 048
  5. LASIX                              /00032601/ [Concomitant]
     Indication: NEPHROSCLEROSIS
     Dosage: UNK
     Route: 048
  6. AVAPRO [Concomitant]
     Dosage: UNK
     Route: 048
  7. THEODUR [Concomitant]
     Dosage: UNK
     Route: 048
  8. URINORM [Concomitant]
     Dosage: UNK
     Route: 048
  9. MAGLAX [Concomitant]
     Dosage: UNK
     Route: 048
  10. PLAVIX [Concomitant]
     Dosage: UNK
     Route: 048
  11. LIVALO [Concomitant]
     Dosage: UNK
     Route: 048
  12. BAYASPIRIN [Concomitant]
     Dosage: UNK
     Route: 048
  13. ROXATIDINE ACETATE HYDROCHLORIDE [Concomitant]
     Indication: GASTRITIS PROPHYLAXIS
     Dosage: UNK
     Route: 048
  14. FERROMIA [Concomitant]
     Dosage: UNK
     Route: 048

REACTIONS (1)
  - Interstitial lung disease [Not Recovered/Not Resolved]
